FAERS Safety Report 7801425-4 (Version None)
Quarter: 2011Q4

REPORT INFORMATION
  Report Type: 
  Country: None (occurrence: None)
  Receive Date: 20111006
  Receipt Date: 20111006
  Transmission Date: 20120403
  Serious: Yes (Hospitalization)
  Sender: FDA-Public Use
  Company Number: None

PATIENT
  Age: 74 Year
  Sex: Male
  Weight: 64.7 kg

DRUGS (14)
  1. CAPECITABINE [Suspect]
     Indication: NEOPLASM MALIGNANT
     Dosage: CHRONIC (3 COURSES)
  2. MAG OX [Concomitant]
  3. CRESTOR [Concomitant]
  4. NEXIUM [Concomitant]
  5. M.V.I. [Concomitant]
  6. METOPROLOL TARTRATE [Concomitant]
  7. COUMADIN [Suspect]
     Indication: ATRIAL FIBRILLATION
     Dosage: 8 MG DAILY PO CHRONIC
     Route: 048
  8. ASPIRIN [Concomitant]
  9. GABAPENTIN [Concomitant]
  10. LOVENOX [Concomitant]
  11. FLECAINIDE ACETATE [Concomitant]
  12. VIT D3 [Concomitant]
  13. B12 COMPLEX [Concomitant]
  14. CISPLATIN + LOW DOSE XELODA [Concomitant]

REACTIONS (4)
  - EPISTAXIS [None]
  - LIVER DISORDER [None]
  - INTERNATIONAL NORMALISED RATIO INCREASED [None]
  - HYPOPHAGIA [None]
